FAERS Safety Report 20349045 (Version 3)
Quarter: 2022Q3

REPORT INFORMATION
  Report Type: Spontaneous
  Country: US (occurrence: US)
  Receive Date: 20220119
  Receipt Date: 20220815
  Transmission Date: 20221027
  Serious: Yes (Other)
  Sender: FDA-Public Use
  Company Number: US-AMGEN-USASP2022007428

PATIENT
  Age: 62 Year
  Sex: Male

DRUGS (5)
  1. OTEZLA [Suspect]
     Active Substance: APREMILAST
     Indication: Psoriasis
     Dosage: 10 MILLIGRAM
     Route: 048
     Dates: start: 20211227, end: 20220111
  2. HUMIRA [Suspect]
     Active Substance: ADALIMUMAB
     Indication: Psoriasis
     Dosage: HUMIRA 40MG/0.8ML , 40 MILLIGRAM
     Route: 058
     Dates: start: 20220204, end: 20220408
  3. METHOTREXATE [Suspect]
     Active Substance: METHOTREXATE
     Indication: Product used for unknown indication
     Dosage: UNK
     Route: 065
     Dates: start: 20210706
  4. SHINGRIX [Suspect]
     Active Substance: RECOMBINANT VARICELLA ZOSTER VIRUS (VZV) GLYCOPROTEIN E
     Indication: Herpes zoster
     Dosage: UNK
     Route: 030
     Dates: start: 20211231, end: 20211231
  5. SHINGRIX [Suspect]
     Active Substance: RECOMBINANT VARICELLA ZOSTER VIRUS (VZV) GLYCOPROTEIN E
     Dosage: UNK
     Route: 030
     Dates: start: 20220408, end: 20220408

REACTIONS (10)
  - Nephrolithiasis [Recovered/Resolved]
  - Haemorrhagic diathesis [Not Recovered/Not Resolved]
  - Injury [Unknown]
  - Skin haemorrhage [Not Recovered/Not Resolved]
  - Feeding disorder [Recovered/Resolved]
  - Malaise [Recovered/Resolved]
  - Purpura [Not Recovered/Not Resolved]
  - Adverse reaction [Unknown]
  - Fatigue [Not Recovered/Not Resolved]
  - Abdominal pain lower [Recovered/Resolved]

NARRATIVE: CASE EVENT DATE: 20220101
